FAERS Safety Report 19077363 (Version 1)
Quarter: 2021Q1

REPORT INFORMATION
  Report Type: Spontaneous
  Country: US (occurrence: US)
  Receive Date: 20210330
  Receipt Date: 20210330
  Transmission Date: 20210420
  Serious: No
  Sender: FDA-Public Use
  Company Number: None

PATIENT
  Sex: Female

DRUGS (6)
  1. ENBREL [Suspect]
     Active Substance: ETANERCEPT
     Indication: PSORIATIC ARTHROPATHY
     Route: 058
     Dates: start: 20201002
  2. METHOCARBAM [Concomitant]
     Active Substance: METHOCARBAMOL
  3. BENZONATATE CLINDAMYCIN [Concomitant]
  4. MELOXICAM. [Concomitant]
     Active Substance: MELOXICAM
  5. ARMOUR THYRO [Concomitant]
  6. HYDROCHLOROT [Concomitant]
     Active Substance: HYDROCHLOROTHIAZIDE

REACTIONS (2)
  - Product distribution issue [None]
  - Therapy interrupted [None]
